FAERS Safety Report 4461851-0 (Version None)
Quarter: 2004Q3

REPORT INFORMATION
  Report Type: 
  Country: None (occurrence: None)
  Receive Date: 20040929
  Receipt Date: 20031103
  Transmission Date: 20050211
  Serious: No
  Sender: FDA-Public Use
  Company Number: US-GLAXOSMITHKLINE-A0432601A

PATIENT
  Age: 59 Year
  Sex: Female

DRUGS (5)
  1. SEREVENT [Suspect]
     Indication: ASTHMA
     Dosage: 2PUFF TWICE PER DAY
     Route: 055
     Dates: start: 20030803
  2. FOSAMAX [Concomitant]
  3. ESTROGEN [Concomitant]
  4. THEOPHYLLINE [Concomitant]
  5. DURATUSS [Concomitant]

REACTIONS (1)
  - DYSPNOEA [None]
